FAERS Safety Report 9197382 (Version 4)
Quarter: 2013Q4

REPORT INFORMATION
  Report Type: Spontaneous
  Country: JP (occurrence: JP)
  Receive Date: 20130328
  Receipt Date: 20131017
  Transmission Date: 20140711
  Serious: Yes (Other)
  Sender: FDA-Public Use
  Company Number: JP-PFIZER INC-2013099314

PATIENT
  Age: 15 Year
  Sex: Female

DRUGS (4)
  1. AMIODARONE HCL [Suspect]
     Indication: VENTRICULAR TACHYCARDIA
     Dosage: UNK
     Route: 048
  2. AMIODARONE HCL [Suspect]
  3. PREDNISOLONE [Suspect]
     Indication: HYPERTHYROIDISM
     Dosage: 30 MG DAILY
     Route: 048
  4. PREDNISOLONE [Suspect]
     Dosage: UNK
     Route: 048

REACTIONS (2)
  - Hyperthyroidism [Recovering/Resolving]
  - Congestive cardiomyopathy [Recovering/Resolving]
